FAERS Safety Report 15108260 (Version 5)
Quarter: 2018Q3

REPORT INFORMATION
  Report Type: Report from Study
  Country: CA (occurrence: CA)
  Receive Date: 20180705
  Receipt Date: 20180929
  Transmission Date: 20181010
  Serious: Yes (Death, Hospitalization, Other)
  Sender: FDA-Public Use
  Company Number: CA-BRISTOL-MYERS SQUIBB COMPANY-BMS-2018-061421

PATIENT
  Age: 59 Year
  Sex: Female

DRUGS (4)
  1. ATIVAN [Concomitant]
     Active Substance: LORAZEPAM
     Indication: PRODUCT USED FOR UNKNOWN INDICATION
     Dosage: UNK
     Route: 065
  2. NIVOLUMAB [Suspect]
     Active Substance: NIVOLUMAB
     Indication: OVARIAN CANCER
     Dosage: 150 MG, UNK
     Route: 042
     Dates: start: 20180605
  3. STATEX                             /00036302/ [Concomitant]
     Active Substance: MORPHINE SULFATE
     Indication: PRODUCT USED FOR UNKNOWN INDICATION
     Dosage: UNK
     Route: 065
  4. NIVOLUMAB [Suspect]
     Active Substance: NIVOLUMAB
     Indication: PRODUCT USED FOR UNKNOWN INDICATION
     Dosage: 150 MG, Q2WK
     Route: 042
     Dates: start: 20180627, end: 20180710

REACTIONS (28)
  - Death [Fatal]
  - Blood sodium decreased [Unknown]
  - Gamma-glutamyltransferase increased [Unknown]
  - Blood magnesium decreased [Unknown]
  - Dyspnoea [Not Recovered/Not Resolved]
  - Peripheral swelling [Unknown]
  - Somnolence [Not Recovered/Not Resolved]
  - Constipation [Unknown]
  - Fatigue [Unknown]
  - Red blood cell count decreased [Unknown]
  - Lymphocyte count decreased [Unknown]
  - Reticulocyte count increased [Unknown]
  - Anxiety [Not Recovered/Not Resolved]
  - Dry mouth [Unknown]
  - Blood albumin decreased [Unknown]
  - Depression [Not Recovered/Not Resolved]
  - Transaminases increased [Unknown]
  - Protein total decreased [Unknown]
  - Nausea [Recovered/Resolved]
  - Fall [Not Recovered/Not Resolved]
  - Neutrophil count increased [Unknown]
  - Blood alkaline phosphatase increased [Unknown]
  - Pain [Not Recovered/Not Resolved]
  - Ascites [Unknown]
  - Diarrhoea [Unknown]
  - Product use in unapproved indication [Unknown]
  - Haemoglobin decreased [Unknown]
  - Haematocrit decreased [Unknown]

NARRATIVE: CASE EVENT DATE: 20180626
